FAERS Safety Report 17264463 (Version 1)
Quarter: 2020Q1

REPORT INFORMATION
  Report Type: Spontaneous
  Country: US (occurrence: US)
  Receive Date: 20200113
  Receipt Date: 20200113
  Transmission Date: 20200409
  Serious: No
  Sender: FDA-Public Use
  Company Number: US-BAYER-2019-235437

PATIENT
  Age: 68 Year
  Sex: Male
  Weight: 82 kg

DRUGS (3)
  1. ALEVE [Suspect]
     Active Substance: NAPROXEN SODIUM
     Dosage: UNK
  2. GABAPENTIN. [Concomitant]
     Active Substance: GABAPENTIN
     Dosage: 300 MG
  3. CELECOXIB. [Suspect]
     Active Substance: CELECOXIB
     Dosage: 200 MG
     Route: 048

REACTIONS (7)
  - Rotator cuff repair [Unknown]
  - Arthralgia [Unknown]
  - Abdominal pain upper [Unknown]
  - Joint swelling [Unknown]
  - Spinal fusion surgery [Unknown]
  - Dizziness [Unknown]
  - Headache [Unknown]
